FAERS Safety Report 5684172-7 (Version None)
Quarter: 2008Q1

REPORT INFORMATION
  Report Type: 
  Country: None (occurrence: None)
  Receive Date: 20080328
  Receipt Date: 20070926
  Transmission Date: 20080703
  Serious: No
  Sender: FDA-Public Use
  Company Number: US-AMGEN-KDL245126

PATIENT
  Age: 52 Year
  Sex: Male

DRUGS (3)
  1. NEULASTA [Suspect]
     Indication: CHEMOTHERAPY
     Dates: start: 20070816
  2. CARBOPLATIN [Concomitant]
  3. TAXOTERE [Concomitant]

REACTIONS (3)
  - BONE PAIN [None]
  - COGNITIVE DISORDER [None]
  - HANGOVER [None]
